FAERS Safety Report 26109224 (Version 1)
Quarter: 2025Q4

REPORT INFORMATION
  Report Type: Spontaneous
  Country: US (occurrence: None)
  Receive Date: 20251126
  Receipt Date: 20251126
  Transmission Date: 20260118
  Serious: Yes (Hospitalization)
  Sender: FDA-CTU
  Company Number: None

PATIENT
  Sex: Male

DRUGS (1)
  1. FYLNETRA [Suspect]
     Active Substance: PEGFILGRASTIM-PBBK
     Indication: Follicular lymphoma
     Dosage: 6 MG ONCE EVERY 28 DAYS SUBCUTANEOUS
     Route: 058
     Dates: start: 20251031

REACTIONS (1)
  - Sepsis [None]
